FAERS Safety Report 6336621-9 (Version None)
Quarter: 2009Q3

REPORT INFORMATION
  Report Type: 
  Country: None (occurrence: None)
  Receive Date: 20090831
  Receipt Date: 20090831
  Transmission Date: 20100115
  Serious: Yes (Life-Threatening)
  Sender: FDA-Public Use
  Company Number: None

PATIENT
  Age: 45 Year
  Sex: Female
  Weight: 65.7716 kg

DRUGS (1)
  1. AVELOX [Suspect]
     Indication: BRONCHITIS
     Dosage: 1 PILL PER DAY PO
     Route: 048
     Dates: start: 20090821, end: 20090823

REACTIONS (3)
  - CHROMATURIA [None]
  - HEPATITIS [None]
  - HEPATOMEGALY [None]
